FAERS Safety Report 6725230-5 (Version None)
Quarter: 2010Q2

REPORT INFORMATION
  Report Type: 
  Country: None (occurrence: None)
  Receive Date: 20100514
  Receipt Date: 20100502
  Transmission Date: 20101027
  Serious: Yes (Life-Threatening)
  Sender: FDA-Public Use
  Company Number: IT-RANBAXY-2010RR-33698

PATIENT
  Age: 30 Year
  Sex: Female

DRUGS (1)
  1. LORAZEPAM [Suspect]

REACTIONS (4)
  - ABNORMAL BEHAVIOUR [None]
  - COMA [None]
  - TACHYCARDIA [None]
  - VOMITING [None]
